FAERS Safety Report 4747228-9 (Version None)
Quarter: 2005Q3

REPORT INFORMATION
  Report Type: 
  Country: None (occurrence: None)
  Receive Date: 20050815
  Receipt Date: 20050805
  Transmission Date: 20060218
  Serious: Yes (Hospitalization, Other)
  Sender: FDA-Public Use
  Company Number: 2005112298

PATIENT
  Sex: Female

DRUGS (2)
  1. LIPITOR [Suspect]
     Indication: BLOOD CHOLESTEROL
     Dosage: 80 MG (80 MG, 1 IN 1 D), ORAL
     Route: 048
     Dates: start: 20050101
  2. ALL OTHER THRAPEUTIC PRODUCTS [Concomitant]

REACTIONS (6)
  - ABDOMINAL OPERATION [None]
  - COUGH [None]
  - DYSPHAGIA [None]
  - INTUBATION COMPLICATION [None]
  - POST PROCEDURAL COMPLICATION [None]
  - THROAT IRRITATION [None]
